FAERS Safety Report 8702567 (Version 2)
Quarter: 2013Q1

REPORT INFORMATION
  Report Type: Report from Study
  Country: JP (occurrence: JP)
  Receive Date: 20120803
  Receipt Date: 20130212
  Transmission Date: 20140127
  Serious: Yes (Other)
  Sender: FDA-Public Use
  Company Number: JP-009507513-2012SP003727

PATIENT
  Age: 57 Year
  Sex: Female
  Weight: 63 kg

DRUGS (27)
  1. PEGINTRON [Suspect]
     Indication: CHRONIC HEPATITIS C
     Dosage: 1.5 ?G/KG/WEEK
     Route: 058
     Dates: start: 20120111, end: 20120213
  2. PEGINTRON [Suspect]
     Dosage: 1.3 ?G/KG/WEEK
     Route: 058
     Dates: start: 20120220, end: 20120319
  3. PEGINTRON [Suspect]
     Dosage: 1.3 ?G/KG/WEEK
     Route: 058
     Dates: start: 20120402, end: 20120625
  4. PEGINTERFERON ALFA-2B [Suspect]
     Indication: HEPATITIS C
     Dosage: 1.5 ?G/KG, QW
     Route: 058
     Dates: start: 20120111, end: 20120213
  5. PEGINTERFERON ALFA-2B [Suspect]
     Dosage: 1.3 ?G/KG, QW
     Route: 058
     Dates: start: 20120220, end: 20120319
  6. PEGINTERFERON ALFA-2B [Suspect]
     Dosage: 1.3 ?G/KG, QW
     Route: 058
     Dates: start: 20120402, end: 20120625
  7. PEGINTERFERON ALFA-2B [Suspect]
     Dosage: 1.5 ?G/KG, QW
     Route: 058
     Dates: start: 20120111, end: 20120213
  8. REBETOL [Suspect]
     Indication: CHRONIC HEPATITIS C
     Dosage: 800 MG, QD
     Route: 048
     Dates: start: 20120111, end: 20120205
  9. REBETOL [Suspect]
     Dosage: 400 MG, QD
     Route: 048
     Dates: start: 20120206, end: 20120212
  10. REBETOL [Suspect]
     Dosage: 200 MG, QD
     Route: 048
     Dates: start: 20120213, end: 20120318
  11. REBETOL [Suspect]
     Dosage: 200 MG, QD
     Route: 048
     Dates: start: 20120416, end: 20120521
  12. REBETOL [Suspect]
     Dosage: 400 MG, QD
     Route: 048
     Dates: start: 20120522, end: 20120527
  13. REBETOL [Suspect]
     Dosage: 200 MG, QD
     Route: 048
     Dates: start: 20120528, end: 20120625
  14. TELAVIC [Suspect]
     Indication: CHRONIC HEPATITIS C
     Dosage: 2250 MG, ONCE
     Route: 048
     Dates: start: 20120111, end: 20120113
  15. TELAVIC [Suspect]
     Dosage: 1500 MG, ONCE
     Route: 048
     Dates: start: 20120120, end: 20120318
  16. DEPAS [Concomitant]
     Indication: INSOMNIA
     Dosage: 0.5 MG, UNK
     Route: 048
  17. DEPAS [Concomitant]
     Dosage: 1 MG, UNK
     Route: 048
  18. DEPAS [Concomitant]
     Dosage: 2 MG, UNK
     Route: 048
     Dates: start: 20120416
  19. FEROTYM [Concomitant]
     Indication: IRON DEFICIENCY ANAEMIA
     Dosage: 100 MG, UNK
     Route: 048
  20. LIVALO [Concomitant]
     Indication: HYPERLIPIDAEMIA
     Dosage: 2 MG, UNK
     Route: 048
     Dates: end: 20120113
  21. LIVALO [Concomitant]
     Dosage: 2 MG, UNK
     Route: 048
     Dates: start: 20120206, end: 20120325
  22. LIVALO [Concomitant]
     Dosage: 2 MG, UNK
     Route: 048
     Dates: start: 20120604
  23. EPADEL S [Concomitant]
     Indication: HYPERLIPIDAEMIA
     Dosage: 1800 MG, UNK
     Route: 048
     Dates: end: 20120325
  24. CLARITIN REDITABS [Concomitant]
     Indication: PROPHYLAXIS
     Dosage: 10 MG, UNK
     Route: 048
  25. CLARITIN REDITABS [Concomitant]
     Dosage: 10 MG, ONCE
     Route: 048
  26. ACINON [Concomitant]
     Indication: GASTRITIS
     Dosage: 300 MG, UNK
     Route: 048
     Dates: start: 20120227
  27. ACINON [Concomitant]
     Indication: GASTRIC ULCER

REACTIONS (3)
  - Renal disorder [Recovering/Resolving]
  - Anaemia [Not Recovered/Not Resolved]
  - Hyperuricaemia [Recovered/Resolved]
